FAERS Safety Report 7692509-2 (Version None)
Quarter: 2011Q3

REPORT INFORMATION
  Report Type: 
  Country: None (occurrence: None)
  Receive Date: 20110819
  Receipt Date: 20110812
  Transmission Date: 20111222
  Serious: Yes (Hospitalization)
  Sender: FDA-Public Use
  Company Number: DE-BRISTOL-MYERS SQUIBB COMPANY-15857113

PATIENT
  Sex: Male

DRUGS (1)
  1. IRBESARTAN + HYDROCHLOROTHIAZIDE [Suspect]
     Indication: SUICIDE ATTEMPT
     Dosage: STRENGTH:300MG; FILM COATED TABS 6
     Route: 048
     Dates: start: 20110624, end: 20110624

REACTIONS (1)
  - INTENTIONAL OVERDOSE [None]
